FAERS Safety Report 6165849-6 (Version None)
Quarter: 2009Q2

REPORT INFORMATION
  Report Type: 
  Country: None (occurrence: None)
  Receive Date: 20090422
  Receipt Date: 20090407
  Transmission Date: 20091009
  Serious: Yes (Death, Hospitalization)
  Sender: FDA-Public Use
  Company Number: 2009S1006195

PATIENT
  Age: 69 Year
  Sex: Male

DRUGS (2)
  1. TEMAZEPAM [Suspect]
     Indication: DRUG USE FOR UNKNOWN INDICATION
  2. ANTIDEPRESSANTS (ANTIDEPRESSANTS) [Suspect]
     Indication: DRUG USE FOR UNKNOWN INDICATION

REACTIONS (13)
  - BLOOD OSMOLARITY INCREASED [None]
  - BLOOD PRESSURE ABNORMAL [None]
  - BODY TEMPERATURE DECREASED [None]
  - DEHYDRATION [None]
  - FALL [None]
  - HYPERGLYCAEMIA [None]
  - LEG AMPUTATION [None]
  - LOSS OF CONSCIOUSNESS [None]
  - MALAISE [None]
  - METABOLIC ACIDOSIS [None]
  - SEPSIS [None]
  - SKIN ULCER [None]
  - STAPHYLOCOCCAL INFECTION [None]
